FAERS Safety Report 6964431-8 (Version None)
Quarter: 2010Q3

REPORT INFORMATION
  Report Type: 
  Country: None (occurrence: None)
  Receive Date: 20100903
  Receipt Date: 20100825
  Transmission Date: 20110219
  Serious: Yes (Hospitalization, Other)
  Sender: FDA-Public Use
  Company Number: DE-PFIZER INC-2010088362

PATIENT
  Age: 27 Year
  Sex: Female
  Weight: 95 kg

DRUGS (1)
  1. DEPO-CLINOVIR [Suspect]
     Dosage: 150 MG, UNK
     Route: 030
     Dates: start: 20100201, end: 20100503

REACTIONS (9)
  - ABDOMINAL PAIN [None]
  - CARDIOVASCULAR DISORDER [None]
  - CHOLELITHIASIS [None]
  - DIZZINESS [None]
  - HEADACHE [None]
  - HYPERTENSION [None]
  - METRORRHAGIA [None]
  - NAUSEA [None]
  - WEIGHT INCREASED [None]
